FAERS Safety Report 25150479 (Version 1)
Quarter: 2025Q2

REPORT INFORMATION
  Report Type: Spontaneous
  Country: IE (occurrence: IE)
  Receive Date: 20250402
  Receipt Date: 20250402
  Transmission Date: 20250716
  Serious: Yes (Other)
  Sender: AZURITY PHARMACEUTICALS
  Company Number: IE-AZURITY PHARMACEUTICALS, INC.-AZR202503-000906

PATIENT
  Age: 26 Year
  Sex: Female

DRUGS (2)
  1. ZONISAMIDE [Suspect]
     Active Substance: ZONISAMIDE
     Indication: Partial seizures
     Route: 065
  2. ZONISAMIDE [Suspect]
     Active Substance: ZONISAMIDE
     Route: 065

REACTIONS (3)
  - Renal tubular acidosis [Recovering/Resolving]
  - Hypokalaemic syndrome [Recovering/Resolving]
  - Weight decreased [Unknown]
